FAERS Safety Report 17129705 (Version 1)
Quarter: 2019Q4

REPORT INFORMATION
  Report Type: Spontaneous
  Country: CA (occurrence: CA)
  Receive Date: 20191209
  Receipt Date: 20191209
  Transmission Date: 20200122
  Serious: Yes (Hospitalization, Other)
  Sender: FDA-Public Use
  Company Number: CA-B.BRAUN MEDICAL INC.-2077616

PATIENT
  Age: 60 Year
  Sex: Female
  Weight: 57 kg

DRUGS (22)
  1. NEULASTA [Concomitant]
     Active Substance: PEGFILGRASTIM
  2. ZOPICLONE [Concomitant]
     Active Substance: ZOPICLONE
  3. DEXAMETHASONE. [Concomitant]
     Active Substance: DEXAMETHASONE
  4. FELODIPINE. [Concomitant]
     Active Substance: FELODIPINE
  5. FLUOROURACIL. [Suspect]
     Active Substance: FLUOROURACIL
  6. ONDANSETRON [Concomitant]
     Active Substance: ONDANSETRON
  7. POTASSIUM GLUCONATE [Concomitant]
     Active Substance: POTASSIUM GLUCONATE
  8. ACETAMINOPHEN. [Concomitant]
     Active Substance: ACETAMINOPHEN
  9. SODIUM CHLORIDE INJECTION USP 0264-7800-09 [Suspect]
     Active Substance: SODIUM CHLORIDE
     Indication: PRODUCT USED FOR UNKNOWN INDICATION
     Route: 042
  10. LORAZEPAM. [Concomitant]
     Active Substance: LORAZEPAM
  11. PERJETA [Suspect]
     Active Substance: PERTUZUMAB
     Route: 042
  12. STEMETIL [Concomitant]
     Active Substance: PROCHLORPERAZINE
  13. PROCYTOX [Suspect]
     Active Substance: CYCLOPHOSPHAMIDE
     Route: 042
  14. TRASTUZUMAB. [Suspect]
     Active Substance: TRASTUZUMAB
     Route: 042
  15. DOCETAXEL. [Suspect]
     Active Substance: DOCETAXEL
     Route: 042
  16. FRAGMIN [Concomitant]
     Active Substance: DALTEPARIN SODIUM
  17. PERJETA [Suspect]
     Active Substance: PERTUZUMAB
     Route: 042
  18. TRASTUZUMAB. [Suspect]
     Active Substance: TRASTUZUMAB
     Route: 042
  19. TYLENOL [Concomitant]
     Active Substance: ACETAMINOPHEN
  20. RAMIPRIL. [Concomitant]
     Active Substance: RAMIPRIL
  21. VITAMIN B12 [Concomitant]
     Active Substance: CYANOCOBALAMIN
  22. EPIRUBICIN HYDROCHLORIDE INJECTION [Suspect]
     Active Substance: EPIRUBICIN HYDROCHLORIDE
     Route: 042

REACTIONS (2)
  - Blood creatine increased [None]
  - Dehydration [None]
